FAERS Safety Report 15779123 (Version 2)
Quarter: 2019Q1

REPORT INFORMATION
  Report Type: Spontaneous
  Country: None (occurrence: US)
  Receive Date: 20190101
  Receipt Date: 20190116
  Transmission Date: 20190417
  Serious: Yes (Congenital Anomaly)
  Sender: FDA-Public Use
  Company Number: US-LABORATOIRE HRA PHARMA-2060733

PATIENT
  Sex: Male
  Weight: 2.49 kg

DRUGS (1)
  1. ELLA [Suspect]
     Active Substance: ULIPRISTAL ACETATE
     Indication: EXPOSURE DURING PREGNANCY
     Route: 064
     Dates: start: 20170628, end: 20170628

REACTIONS (2)
  - Anterior chamber cleavage syndrome [Not Recovered/Not Resolved]
  - Polydactyly [Recovered/Resolved]
